FAERS Safety Report 21609503 (Version 2)
Quarter: 2024Q1

REPORT INFORMATION
  Report Type: Report from Study
  Country: US (occurrence: US)
  Receive Date: 20221117
  Receipt Date: 20240130
  Transmission Date: 20240410
  Serious: No
  Sender: FDA-Public Use
  Company Number: US-KYOWAKIRIN-2022BKK017781

PATIENT

DRUGS (2)
  1. MOGAMULIZUMAB [Suspect]
     Active Substance: MOGAMULIZUMAB
     Indication: Cutaneous T-cell lymphoma
     Dosage: EVERY OTHER WEEK
     Route: 042
     Dates: start: 202204
  2. MOGAMULIZUMAB [Suspect]
     Active Substance: MOGAMULIZUMAB
     Dosage: UNK, 1X/3MONTHS
     Route: 042

REACTIONS (5)
  - Pruritus [Recovering/Resolving]
  - Pain in extremity [Recovered/Resolved]
  - Rash [Recovering/Resolving]
  - Adverse drug reaction [Unknown]
  - Product dose omission issue [Recovered/Resolved]
